FAERS Safety Report 7798846-5 (Version None)
Quarter: 2011Q4

REPORT INFORMATION
  Report Type: 
  Country: None (occurrence: None)
  Receive Date: 20111005
  Receipt Date: 20111005
  Transmission Date: 20120403
  Serious: No
  Sender: FDA-Public Use
  Company Number: None

PATIENT
  Sex: Female

DRUGS (1)
  1. EXJADE [Suspect]
     Indication: HAEMOCHROMATOSIS
     Dosage: 500MG DAILY ORAL
     Route: 048
     Dates: start: 20110706, end: 20110930

REACTIONS (3)
  - CONFUSIONAL STATE [None]
  - FATIGUE [None]
  - DRY MOUTH [None]
